FAERS Safety Report 20156563 (Version 1)
Quarter: 2021Q4

REPORT INFORMATION
  Report Type: Spontaneous
  Country: CN (occurrence: CN)
  Receive Date: 20211207
  Receipt Date: 20211207
  Transmission Date: 20220304
  Serious: Yes (Other)
  Sender: FDA-Public Use
  Company Number: CN-FRESENIUS KABI-FK202113453

PATIENT
  Age: 21 Year
  Sex: Female
  Weight: 55 kg

DRUGS (3)
  1. LIDOCAINE [Suspect]
     Active Substance: LIDOCAINE
     Indication: Epidural anaesthesia
     Route: 008
  2. CHLOROPROCAINE [Suspect]
     Active Substance: CHLOROPROCAINE
     Indication: Epidural anaesthesia
     Route: 008
  3. BUPIVACAINE [Suspect]
     Active Substance: BUPIVACAINE
     Indication: Spinal anaesthesia
     Route: 050

REACTIONS (4)
  - Spinal subdural haematoma [Recovered/Resolved]
  - Anaesthetic complication [Recovered/Resolved]
  - Anaesthetic complication [Recovered/Resolved]
  - Exposure during pregnancy [Recovered/Resolved]
